FAERS Safety Report 11215396 (Version 1)
Quarter: 2015Q2

REPORT INFORMATION
  Report Type: Spontaneous
  Country: DK (occurrence: DK)
  Receive Date: 20150624
  Receipt Date: 20150624
  Transmission Date: 20150821
  Serious: Yes (Life-Threatening, Hospitalization)
  Sender: FDA-Public Use
  Company Number: DK-WATSON-2013-21170

PATIENT
  Age: 67 Year
  Sex: Female

DRUGS (13)
  1. HJERTEMAGNYL                       /00228701/ [Concomitant]
     Active Substance: ASPIRIN\MAGNESIUM OXIDE
     Indication: PROPHYLAXIS
     Dosage: 75 MG, DAILY
     Route: 065
     Dates: start: 20121001
  2. VEPESID [Suspect]
     Active Substance: ETOPOSIDE
     Indication: CHEMOTHERAPY
     Dosage: UNK
     Route: 048
     Dates: start: 20130923, end: 201311
  3. LOSARTAN AND HYDROCHLOROTHIAZIDE [Concomitant]
     Active Substance: HYDROCHLOROTHIAZIDE\LOSARTAN POTASSIUM
     Indication: HYPERTENSION
     Dosage: 100 MG, DAILY
     Route: 065
     Dates: start: 20121128
  4. MORFIN                             /00036303/ [Concomitant]
     Indication: FIBROMYALGIA
     Dosage: 10 MG, UNK
     Route: 065
     Dates: start: 20120417
  5. CARBOPLATIN ACTAVIS [Suspect]
     Active Substance: CARBOPLATIN
     Indication: CHEMOTHERAPY
     Dosage: UNK
     Route: 065
     Dates: start: 20130920, end: 201311
  6. KALEORID [Concomitant]
     Active Substance: POTASSIUM CHLORIDE
     Indication: MINERAL SUPPLEMENTATION
     Dosage: 750 MG, DAILY
     Route: 065
     Dates: start: 20130529
  7. AMITRIPTYLIN [Concomitant]
     Active Substance: AMITRIPTYLINE
     Indication: PAIN
     Dosage: 30 MG, BID
     Route: 065
     Dates: start: 20130918
  8. PANTOPRAZOLE [Concomitant]
     Active Substance: PANTOPRAZOLE SODIUM
     Indication: GASTROOESOPHAGEAL REFLUX DISEASE
     Dosage: 40 MG, DAILY
     Route: 065
     Dates: start: 20130823
  9. EMPERAL [Concomitant]
     Active Substance: METOCLOPRAMIDE HYDROCHLORIDE
     Indication: NAUSEA
     Dosage: 30 MG, DAILY
     Route: 065
     Dates: start: 20100805
  10. DIURAL                             /00032601/ [Concomitant]
     Indication: DIURETIC THERAPY
     Dosage: 80 MG, DAILY
     Route: 065
     Dates: start: 20130510
  11. SPARKAL [Concomitant]
     Active Substance: AMILORIDE HYDROCHLORIDE
     Indication: DIURETIC THERAPY
     Dosage: 1 DF, DAILY
     Route: 065
     Dates: start: 20121001
  12. OXABENZ [Concomitant]
     Active Substance: OXAZEPAM
     Indication: SEDATION
     Dosage: 15 MG, TID
     Route: 065
     Dates: start: 20130305
  13. NITRAZEPAM [Concomitant]
     Active Substance: NITRAZEPAM
     Indication: SEDATION
     Dosage: 5 MG, DAILY
     Route: 065
     Dates: start: 20130404

REACTIONS (5)
  - Dyspnoea [Recovered/Resolved]
  - Leukopenia [Recovered/Resolved]
  - Anaemia [Recovered/Resolved]
  - Fatigue [Recovered/Resolved]
  - Febrile neutropenia [Recovered/Resolved]

NARRATIVE: CASE EVENT DATE: 20131001
